FAERS Safety Report 4765858-5 (Version None)
Quarter: 2005Q3

REPORT INFORMATION
  Report Type: 
  Country: None (occurrence: None)
  Receive Date: 20050907
  Receipt Date: 20050829
  Transmission Date: 20060218
  Serious: Yes (Other)
  Sender: FDA-Public Use
  Company Number: 2005121260

PATIENT
  Age: 72 Year
  Sex: Male

DRUGS (3)
  1. LIPITOR [Suspect]
     Indication: BLOOD CHOLESTEROL INCREASED
     Dosage: 10 MG (10 MG, 1 IN 1 D)
  2. LOPRESSOR [Concomitant]
  3. ZOLOFT [Concomitant]

REACTIONS (7)
  - LYMPHOMA [None]
  - METASTASES TO GALLBLADDER [None]
  - METASTASES TO LIVER [None]
  - METASTASES TO SPLEEN [None]
  - MYOCARDIAL INFARCTION [None]
  - NEOPLASM RECURRENCE [None]
  - WEIGHT DECREASED [None]
